FAERS Safety Report 8351411-3 (Version None)
Quarter: 2012Q2

REPORT INFORMATION
  Report Type: 
  Country: None (occurrence: None)
  Receive Date: 20120510
  Receipt Date: 20120501
  Transmission Date: 20120825
  Serious: Yes (Other)
  Sender: FDA-Public Use
  Company Number: US-ASTRAZENECA-2012SE03315

PATIENT
  Age: 55 Year
  Sex: Female
  Weight: 68 kg

DRUGS (4)
  1. SEROQUEL [Suspect]
     Indication: SUICIDAL IDEATION
     Route: 048
     Dates: start: 20090101
  2. SEROQUEL [Suspect]
     Indication: SLEEP DISORDER
     Route: 048
     Dates: start: 20090101
  3. SEROQUEL [Suspect]
     Indication: DEPRESSION
     Route: 048
     Dates: start: 20090101
  4. EFFOXOR XR [Concomitant]
     Indication: DEPRESSION
     Dates: start: 20110101

REACTIONS (8)
  - HALLUCINATION, AUDITORY [None]
  - BIPOLAR I DISORDER [None]
  - DRUG PRESCRIBING ERROR [None]
  - SKULL FRACTURE [None]
  - PSYCHOTIC DISORDER [None]
  - TACHYPHRENIA [None]
  - FALL [None]
  - HEAD INJURY [None]
